FAERS Safety Report 9152767 (Version 1)
Quarter: 2013Q1

REPORT INFORMATION
  Report Type: Report from Study
  Country: US (occurrence: US)
  Receive Date: 20130308
  Receipt Date: 20130308
  Transmission Date: 20140127
  Serious: Yes (Hospitalization)
  Sender: FDA-Public Use
  Company Number: US-US-EMD SERONO, INC.-7197436

PATIENT
  Sex: Male

DRUGS (2)
  1. REBIF [Suspect]
     Indication: MULTIPLE SCLEROSIS
     Route: 058
     Dates: start: 20020803
  2. TYLENOL [Concomitant]
     Indication: PREMEDICATION

REACTIONS (5)
  - Staphylococcal infection [Recovered/Resolved]
  - Injection site cellulitis [Recovered/Resolved]
  - Injection site haemorrhage [Recovered/Resolved]
  - Speech disorder [Unknown]
  - Injection site pain [Not Recovered/Not Resolved]
